FAERS Safety Report 10565447 (Version 1)
Quarter: 2014Q4

REPORT INFORMATION
  Report Type: Spontaneous
  Country: US (occurrence: US)
  Receive Date: 20141105
  Receipt Date: 20141105
  Transmission Date: 20150529
  Serious: No
  Sender: FDA-Public Use
  Company Number: US-PFIZER INC-2014304110

PATIENT
  Sex: Female

DRUGS (5)
  1. EXCEDRIN [Suspect]
     Active Substance: ACETAMINOPHEN\ASPIRIN\CAFFEINE
     Indication: ANALGESIC THERAPY
     Dosage: 1 DF, UNK
  2. AMITRIPTYLINE [Concomitant]
     Active Substance: AMITRIPTYLINE
     Indication: DEPRESSION
     Dosage: UNK
  3. TRAMADOL HCL [Suspect]
     Active Substance: TRAMADOL HYDROCHLORIDE
     Indication: ANALGESIC THERAPY
     Dosage: 3 DF, UNK
  4. XANAX [Suspect]
     Active Substance: ALPRAZOLAM
     Indication: ANALGESIC THERAPY
     Dosage: 0.5 DF, UNK
  5. AMITRIPTYLINE [Concomitant]
     Active Substance: AMITRIPTYLINE
     Indication: PAIN

REACTIONS (2)
  - Drug effect incomplete [Unknown]
  - Drug ineffective [Unknown]
